FAERS Safety Report 9645295 (Version 1)
Quarter: 2013Q4

REPORT INFORMATION
  Report Type: Spontaneous
  Country: US (occurrence: None)
  Receive Date: 20131023
  Receipt Date: 20131023
  Transmission Date: 20140711
  Serious: No
  Sender: FDA-Public Use
  Company Number: None

PATIENT
  Age: 43 Year
  Sex: Female
  Weight: 65.77 kg

DRUGS (6)
  1. BUPROPION XL [Suspect]
     Indication: DEPRESSION
     Dosage: 3 TABS
     Route: 048
     Dates: start: 20131002, end: 20131018
  2. SYNTHROID [Concomitant]
  3. WELLBUTRIN [Concomitant]
  4. ADVIL [Concomitant]
  5. TYLENOL [Concomitant]
  6. DELSYM [Concomitant]

REACTIONS (5)
  - Headache [None]
  - Nausea [None]
  - Pollakiuria [None]
  - Disturbance in attention [None]
  - Feeling abnormal [None]
